FAERS Safety Report 4597554-1 (Version None)
Quarter: 2005Q1

REPORT INFORMATION
  Report Type: 
  Country: None (occurrence: None)
  Receive Date: 20050228
  Receipt Date: 20050228
  Transmission Date: 20050727
  Serious: Yes (Hospitalization)
  Sender: FDA-Public Use
  Company Number: None

PATIENT
  Age: 75 Year
  Sex: Male
  Weight: 84.8226 kg

DRUGS (12)
  1. COZAAR [Suspect]
     Indication: HYPERTENSION
     Dosage: 25 MG PO
     Route: 048
     Dates: start: 20050221, end: 20050223
  2. LOVENOX [Concomitant]
  3. COMBIVENT [Concomitant]
  4. TRICOR [Concomitant]
  5. ZETIA [Concomitant]
  6. ASPIRIN [Concomitant]
  7. MINOXIDIL [Concomitant]
  8. LOPRESSOR [Concomitant]
  9. VANTIN [Concomitant]
  10. PREDNISONE [Concomitant]
  11. TYLENOL (CAPLET) [Concomitant]
  12. REGULAR INSULIN [Concomitant]

REACTIONS (1)
  - RENAL FAILURE ACUTE [None]
